FAERS Safety Report 4680040-8 (Version None)
Quarter: 2005Q2

REPORT INFORMATION
  Report Type: 
  Country: None (occurrence: None)
  Receive Date: 20050602
  Receipt Date: 20050531
  Transmission Date: 20051028
  Serious: Yes (Hospitalization)
  Sender: FDA-Public Use
  Company Number: FR-GLAXOSMITHKLINE-B0382725A

PATIENT
  Age: 26 Month
  Sex: Female
  Weight: 11 kg

DRUGS (4)
  1. CLAMOXYL [Suspect]
     Indication: PHARYNGOLARYNGEAL PAIN
     Dosage: 250MG THREE TIMES PER DAY
     Route: 048
     Dates: start: 20050428, end: 20050506
  2. PERIDYS [Concomitant]
     Indication: PHARYNGOLARYNGEAL PAIN
     Route: 048
     Dates: start: 20050428, end: 20050503
  3. MAXILASE [Concomitant]
     Indication: PHARYNGOLARYNGEAL PAIN
     Dosage: 5ML THREE TIMES PER DAY
     Route: 048
     Dates: start: 20050428, end: 20050503
  4. EFFERALGAN [Concomitant]
     Indication: PHARYNGOLARYNGEAL PAIN
     Route: 065
     Dates: start: 20050428

REACTIONS (3)
  - HYPERTHERMIA [None]
  - SCRATCH [None]
  - URTICARIA [None]
